FAERS Safety Report 8443430-3 (Version None)
Quarter: 2012Q2

REPORT INFORMATION
  Report Type: 
  Country: None (occurrence: None)
  Receive Date: 20120618
  Receipt Date: 20120604
  Transmission Date: 20120825
  Serious: Yes (Hospitalization)
  Sender: FDA-Public Use
  Company Number: TW-CELGENEUS-153-21880-11080182

PATIENT
  Sex: Female
  Weight: 55 kg

DRUGS (8)
  1. QUINIDINE HCL [Concomitant]
     Dosage: 200 MILLIGRAM
     Route: 048
     Dates: start: 20110711, end: 20110718
  2. AMOXICILLIN [Concomitant]
     Indication: ANTIINFLAMMATORY THERAPY
     Dosage: 1500 MILLIGRAM
     Route: 048
     Dates: start: 20110730, end: 20110806
  3. REVLIMID [Suspect]
     Indication: MULTIPLE MYELOMA
     Dosage: 25 MILLIGRAM
     Route: 048
     Dates: start: 20110614
  4. DIMENHYDRINATE [Concomitant]
     Indication: PROPHYLAXIS AGAINST MOTION SICKNESS
     Dosage: 75 MILLIGRAM
     Route: 048
     Dates: start: 20110711, end: 20110808
  5. REVLIMID [Suspect]
     Dosage: 25 MILLIGRAM
     Route: 048
     Dates: start: 20110712, end: 20110801
  6. DEXAMETHASONE [Concomitant]
     Indication: MULTIPLE MYELOMA
     Dosage: 40 MILLIGRAM
     Route: 048
     Dates: start: 20110711, end: 20110715
  7. BARACLUDE [Concomitant]
     Indication: HEPATITIS B
     Dosage: .5 MILLIGRAM
     Route: 048
     Dates: start: 20110711, end: 20110808
  8. ELTMEIR [Concomitant]
     Indication: THYROID THERAPY
     Dosage: .15 MILLIGRAM
     Route: 048
     Dates: start: 20110711, end: 20110808

REACTIONS (1)
  - OSTEOMYELITIS [None]
